FAERS Safety Report 13765510 (Version 3)
Quarter: 2017Q4

REPORT INFORMATION
  Report Type: Report from Study
  Country: BR (occurrence: BR)
  Receive Date: 20170718
  Receipt Date: 20171016
  Transmission Date: 20180320
  Serious: Yes (Hospitalization, Other)
  Sender: FDA-Public Use
  Company Number: PHHY2017BR002034

PATIENT
  Sex: Male
  Weight: 55.5 kg

DRUGS (5)
  1. EVEROLIMUS. [Suspect]
     Active Substance: EVEROLIMUS
     Indication: NEUROENDOCRINE TUMOUR
     Dosage: 10 MG, UNK
     Route: 065
  2. METHADONE [Concomitant]
     Active Substance: METHADONE HYDROCHLORIDE
     Indication: PAIN
     Route: 065
  3. SANDOSTATIN LAR DEPOT [Suspect]
     Active Substance: OCTREOTIDE ACETATE
     Dosage: 20 MG, QMO
     Route: 030
  4. ALENIA [Concomitant]
     Active Substance: BUDESONIDE\FORMOTEROL FUMARATE
     Indication: LUNG DISORDER
     Dosage: 400 OT, UNK
     Route: 065
  5. SANDOSTATIN LAR DEPOT [Suspect]
     Active Substance: OCTREOTIDE ACETATE
     Indication: NEUROENDOCRINE TUMOUR
     Dosage: 30 MG, QMO (ONCE A MONTH)
     Route: 030
     Dates: start: 20150825

REACTIONS (33)
  - Haematemesis [Not Recovered/Not Resolved]
  - Immunodeficiency [Unknown]
  - Oesophageal haemorrhage [Not Recovered/Not Resolved]
  - Hepatic cirrhosis [Not Recovered/Not Resolved]
  - Fear [Unknown]
  - Influenza [Unknown]
  - Anger [Unknown]
  - Gait disturbance [Recovering/Resolving]
  - Metastases to bone [Unknown]
  - Malignant neoplasm progression [Unknown]
  - Stress [Unknown]
  - Eating disorder [Unknown]
  - Haematochezia [Not Recovered/Not Resolved]
  - Swelling face [Unknown]
  - Insomnia [Unknown]
  - Pyrexia [Not Recovered/Not Resolved]
  - Depressed mood [Unknown]
  - Nervousness [Unknown]
  - Gastritis [Unknown]
  - Erythema [Unknown]
  - Hypersensitivity [Unknown]
  - Neuroendocrine tumour [Unknown]
  - Malaise [Unknown]
  - Haemorrhagic disorder [Not Recovered/Not Resolved]
  - Asthenia [Not Recovered/Not Resolved]
  - Palpitations [Unknown]
  - Mental disorder [Unknown]
  - Vomiting [Unknown]
  - Heart rate increased [Unknown]
  - Pain [Not Recovered/Not Resolved]
  - Swelling [Not Recovered/Not Resolved]
  - Weight decreased [Unknown]
  - Aggression [Unknown]
